FAERS Safety Report 4852335-6 (Version None)
Quarter: 2005Q4

REPORT INFORMATION
  Report Type: 
  Country: None (occurrence: None)
  Receive Date: 20051213
  Receipt Date: 20051012
  Transmission Date: 20060501
  Serious: Yes (Death, Hospitalization)
  Sender: FDA-Public Use
  Company Number: FR-ROCHE-421074

PATIENT
  Age: 56 Year
  Sex: Female

DRUGS (5)
  1. INTERFERON ALFA-2A [Suspect]
     Route: 058
     Dates: start: 20050418, end: 20050701
  2. QUINAPRIL HYDROCHLORIDE AND HYDROCHLOROTHIAZDE [Concomitant]
  3. PARACETAMOL [Concomitant]
  4. PRIMPERAN INJ [Concomitant]
  5. SILOMAT [Concomitant]

REACTIONS (5)
  - BRAIN DEATH [None]
  - CEREBRAL HAEMORRHAGE [None]
  - COMA [None]
  - HYDROCEPHALUS [None]
  - MALAISE [None]
